FAERS Safety Report 8614817-0 (Version None)
Quarter: 2012Q3

REPORT INFORMATION
  Report Type: 
  Country: None (occurrence: None)
  Receive Date: 20120823
  Receipt Date: 20120813
  Transmission Date: 20120928
  Serious: Yes (Hospitalization)
  Sender: FDA-Public Use
  Company Number: IT-BRISTOL-MYERS SQUIBB COMPANY-16852816

PATIENT
  Age: 84 Year
  Sex: Male

DRUGS (6)
  1. COUMADIN [Suspect]
     Indication: ATRIAL FIBRILLATION
     Route: 048
     Dates: start: 20120726, end: 20120810
  2. PANTOPRAZOLE [Concomitant]
  3. POLASE [Concomitant]
     Indication: NUTRITIONAL SUPPORT
  4. LORAZEPAM [Concomitant]
  5. BISOPROLOL FUMARATE [Concomitant]
  6. FUROSEMIDE [Concomitant]

REACTIONS (2)
  - HYPOCOAGULABLE STATE [None]
  - ANAEMIA [None]
